FAERS Safety Report 12602078 (Version 1)
Quarter: 2016Q3

REPORT INFORMATION
  Report Type: Spontaneous
  Country: US (occurrence: US)
  Receive Date: 20160728
  Receipt Date: 20160728
  Transmission Date: 20161109
  Serious: No
  Sender: FDA-Public Use
  Company Number: US-PFIZER INC-2016329175

PATIENT
  Age: 65 Year
  Sex: Male
  Weight: 83.91 kg

DRUGS (1)
  1. VIAGRA [Suspect]
     Active Substance: SILDENAFIL CITRATE
     Indication: ERECTILE DYSFUNCTION
     Dosage: 100 MG, ORAL TABLETS, TWO TABLETS AS NEEDED
     Route: 048

REACTIONS (3)
  - Intentional product use issue [Unknown]
  - Product quality issue [Unknown]
  - Drug ineffective [Unknown]
